FAERS Safety Report 4357049-7 (Version None)
Quarter: 2004Q2

REPORT INFORMATION
  Report Type: 
  Country: None (occurrence: None)
  Receive Date: 20040512
  Receipt Date: 20040430
  Transmission Date: 20050107
  Serious: Yes (Other)
  Sender: FDA-Public Use
  Company Number: ZA-GLAXOSMITHKLINE-B0331702A

PATIENT
  Age: 28 Year
  Sex: Male

DRUGS (5)
  1. AUGMENTIN [Suspect]
     Indication: INFECTION
     Route: 048
  2. MYPRODOL [Concomitant]
  3. VALIUM [Concomitant]
     Dosage: 10MG AT NIGHT
  4. TEGRETOL [Concomitant]
     Dosage: 600MG TWICE PER DAY
  5. UNSPECIFIED MEDICATION [Concomitant]
     Dosage: 5MG THREE TIMES PER DAY

REACTIONS (1)
  - EPILEPSY [None]
